FAERS Safety Report 5661479-0 (Version None)
Quarter: 2008Q1

REPORT INFORMATION
  Report Type: 
  Country: None (occurrence: None)
  Receive Date: 20080311
  Receipt Date: 20080306
  Transmission Date: 20080703
  Serious: Yes (Death, Hospitalization)
  Sender: FDA-Public Use
  Company Number: NO-GENENTECH-257317

PATIENT
  Sex: Male
  Weight: 96 kg

DRUGS (7)
  1. ACTIVASE [Suspect]
     Indication: CEREBRAL INFARCTION
     Dosage: 9 MG, SINGLE
     Route: 040
     Dates: start: 20080109
  2. ACTIVASE [Suspect]
     Dosage: 81 MG, SINGLE
     Route: 042
  3. SIMVASTATIN [Concomitant]
     Indication: DRUG USE FOR UNKNOWN INDICATION
     Dosage: 40 MG, QD
     Route: 048
  4. RENITEC [Concomitant]
     Indication: DRUG USE FOR UNKNOWN INDICATION
     Dosage: 10 MG, QD
     Route: 048
  5. SELO-ZOK [Concomitant]
     Indication: DRUG USE FOR UNKNOWN INDICATION
     Dosage: 200 MG, QD
     Route: 048
  6. ALBYL [Concomitant]
     Indication: DRUG USE FOR UNKNOWN INDICATION
     Dosage: 75 MG, UNK
     Route: 048
  7. ALBYL [Concomitant]
     Dosage: 160 MG, QD
     Route: 048

REACTIONS (1)
  - SUDDEN DEATH [None]
